FAERS Safety Report 7245736-2 (Version None)
Quarter: 2011Q1

REPORT INFORMATION
  Report Type: 
  Country: None (occurrence: None)
  Receive Date: 20110126
  Receipt Date: 20110119
  Transmission Date: 20110831
  Serious: Yes (Hospitalization, Other)
  Sender: FDA-Public Use
  Company Number: ES-CEPHALON-2010004353

PATIENT
  Sex: Male

DRUGS (5)
  1. OMEPRAZOLE [Concomitant]
     Dates: start: 20060101
  2. TREANDA [Suspect]
     Indication: NON-HODGKIN'S LYMPHOMA
     Route: 042
     Dates: start: 20100309, end: 20100803
  3. RITUXIMAB [Suspect]
     Indication: NON-HODGKIN'S LYMPHOMA
     Route: 042
     Dates: start: 20100309, end: 20100803
  4. ENCOMOR [Concomitant]
     Dates: start: 20060101
  5. CLEXANE [Concomitant]

REACTIONS (3)
  - PYREXIA [None]
  - ANAL ABSCESS [None]
  - NEUTROPENIA [None]
